FAERS Safety Report 10766839 (Version 2)
Quarter: 2015Q1

REPORT INFORMATION
  Report Type: Spontaneous
  Country: IL (occurrence: IL)
  Receive Date: 20150205
  Receipt Date: 20150210
  Transmission Date: 20150721
  Serious: Yes (Hospitalization, Other)
  Sender: FDA-Public Use
  Company Number: IL-GILEAD-2015-0135383

PATIENT
  Age: 67 Year
  Sex: Male

DRUGS (9)
  1. DIMITONE [Concomitant]
  2. ALLORIL [Concomitant]
  3. DIGOXIN. [Concomitant]
     Active Substance: DIGOXIN
     Dosage: 0.125 MG, UNK
  4. SINTROM [Concomitant]
     Active Substance: ACENOCOUMAROL
  5. DACLATASVIR [Concomitant]
     Active Substance: DACLATASVIR
  6. FUSID                              /00032601/ [Concomitant]
     Dosage: 80 MG, UNK
  7. RECORMON                           /00928301/ [Concomitant]
  8. OCSAAR                             /01121601/ [Concomitant]
  9. SOVALDI [Suspect]
     Active Substance: SOFOSBUVIR
     Indication: HEPATITIS C
     Dosage: UNK
     Route: 065
     Dates: start: 201501

REACTIONS (2)
  - Ascites [Unknown]
  - Cardiac failure congestive [Not Recovered/Not Resolved]

NARRATIVE: CASE EVENT DATE: 20150202
